FAERS Safety Report 12479635 (Version 1)
Quarter: 2016Q2

REPORT INFORMATION
  Report Type: Spontaneous
  Country: US (occurrence: None)
  Receive Date: 20160617
  Receipt Date: 20160617
  Transmission Date: 20160815
  Serious: No
  Sender: FDA-Public Use
  Company Number: None

PATIENT
  Age: 68 Year
  Sex: Female

DRUGS (3)
  1. IBANDRONATE 1MG/ML SUN [Suspect]
     Active Substance: IBANDRONATE SODIUM
     Indication: CHEST PAIN
     Dosage: 3MG Q3M IV
     Route: 042
     Dates: start: 20150819, end: 20160615
  2. IBANDRONATE 1MG/ML SUN [Suspect]
     Active Substance: IBANDRONATE SODIUM
     Indication: MUSCLE SPASMS
     Dosage: 3MG Q3M IV
     Route: 042
     Dates: start: 20150819, end: 20160615
  3. IBANDRONATE 1MG/ML SUN [Suspect]
     Active Substance: IBANDRONATE SODIUM
     Indication: CONTUSION
     Dosage: 3MG Q3M IV
     Route: 042
     Dates: start: 20150819, end: 20160615

REACTIONS (2)
  - Influenza like illness [None]
  - Delirium [None]

NARRATIVE: CASE EVENT DATE: 20150819
